FAERS Safety Report 15660590 (Version 8)
Quarter: 2021Q1

REPORT INFORMATION
  Report Type: Report from Study
  Country: JP (occurrence: JP)
  Receive Date: 20181127
  Receipt Date: 20210209
  Transmission Date: 20210419
  Serious: Yes (Hospitalization)
  Sender: FDA-Public Use
  Company Number: JP-EISAI MEDICAL RESEARCH-EC-2018-048188

PATIENT
  Age: 62 Year
  Sex: Female
  Weight: 49 kg

DRUGS (11)
  1. LOXONIN [Concomitant]
     Active Substance: LOXOPROFEN SODIUM
  2. BETNEVATE [Concomitant]
  3. BUKURYOINGOHANGEKOBOKUTO [Concomitant]
  4. MAGMITT [Concomitant]
     Active Substance: MAGNESIUM OXIDE
  5. COIX SEED [Concomitant]
  6. FAMOTIDINE OD [Concomitant]
     Active Substance: FAMOTIDINE
  7. NOVAMIN [Concomitant]
  8. ERIBULIN [Suspect]
     Active Substance: ERIBULIN
     Indication: ADENOID CYSTIC CARCINOMA
     Route: 041
     Dates: start: 20181113, end: 20181113
  9. ERIBULIN [Suspect]
     Active Substance: ERIBULIN
     Route: 041
     Dates: start: 20181212, end: 20190205
  10. METOCLOPRAMIDE. [Concomitant]
     Active Substance: METOCLOPRAMIDE
  11. OLOPATADINE HYDROCHLORIDE. [Concomitant]
     Active Substance: OLOPATADINE HYDROCHLORIDE

REACTIONS (2)
  - Rash maculo-papular [Recovering/Resolving]
  - Nausea [Recovering/Resolving]

NARRATIVE: CASE EVENT DATE: 20181115
